FAERS Safety Report 9696355 (Version 1)
Quarter: 2013Q4

REPORT INFORMATION
  Report Type: Spontaneous
  Country: DK (occurrence: NL)
  Receive Date: 20131119
  Receipt Date: 20131119
  Transmission Date: 20140711
  Serious: Yes (Life-Threatening, Hospitalization)
  Sender: FDA-Public Use
  Company Number: NL-FRI-1000051461

PATIENT
  Age: 55 Year
  Sex: Female

DRUGS (3)
  1. CITALOPRAM [Suspect]
     Indication: DEPRESSION
     Dosage: 20 MG
     Route: 048
     Dates: start: 201302, end: 2013
  2. CITALOPRAM [Suspect]
     Indication: ANXIETY
     Route: 048
     Dates: start: 2013
  3. SPIRONOLACTON [Concomitant]
     Dosage: 25 MG
     Route: 048

REACTIONS (1)
  - Rib fracture [Unknown]
